FAERS Safety Report 11007920 (Version 3)
Quarter: 2015Q2

REPORT INFORMATION
  Report Type: Spontaneous
  Country: US (occurrence: DE)
  Receive Date: 20150409
  Receipt Date: 20150423
  Transmission Date: 20150821
  Serious: No
  Sender: FDA-Public Use
  Company Number: DE-FRI-1000075714

PATIENT
  Age: 57 Year
  Sex: Male

DRUGS (3)
  1. MELPERONE [Suspect]
     Active Substance: MELPERONE
     Indication: PRODUCT USED FOR UNKNOWN INDICATION
  2. ROFLUMILAST [Suspect]
     Active Substance: ROFLUMILAST
     Indication: PRODUCT USED FOR UNKNOWN INDICATION
     Dosage: 500 MCG
     Route: 048
  3. ROFLUMILAST [Suspect]
     Active Substance: ROFLUMILAST
     Dosage: 2500 MCG (5 TABLETS)
     Route: 048
     Dates: start: 201503, end: 201503

REACTIONS (3)
  - Confusional state [Recovered/Resolved]
  - Restlessness [Recovered/Resolved]
  - Accidental overdose [Recovered/Resolved]

NARRATIVE: CASE EVENT DATE: 201503
